FAERS Safety Report 16737462 (Version 3)
Quarter: 2020Q1

REPORT INFORMATION
  Report Type: Spontaneous
  Country: US (occurrence: US)
  Receive Date: 20190823
  Receipt Date: 20200130
  Transmission Date: 20200409
  Serious: Yes (Hospitalization)
  Sender: FDA-Public Use
  Company Number: US-PFIZER INC-2018013129

PATIENT
  Age: 43 Year
  Sex: Female

DRUGS (8)
  1. DOCETAXEL MCKESSON CORPORATION [Suspect]
     Active Substance: DOCETAXEL
     Indication: TRIPLE NEGATIVE BREAST CANCER
     Dosage: 165 MG, CYCLIC (12 CYCLES, EVERY WEEK)
     Dates: end: 20110728
  2. DOCETAXEL. [Suspect]
     Active Substance: DOCETAXEL
     Indication: TRIPLE NEGATIVE BREAST CANCER
     Dosage: 165 MG, CYCLIC (12 CYCLES, EVERY WEEK)
     Dates: end: 20110728
  3. DOCETAXEL ACCORD [Suspect]
     Active Substance: DOCETAXEL
     Indication: TRIPLE NEGATIVE BREAST CANCER
     Dosage: 165 MG, CYCLIC (12 CYCLES, EVERY WEEK)
     Dates: end: 20110728
  4. TAXOL [Concomitant]
     Active Substance: PACLITAXEL
     Indication: CHEMOTHERAPY
     Dosage: UNK
  5. CYCLOPHOSPHAMIDE. [Concomitant]
     Active Substance: CYCLOPHOSPHAMIDE
     Indication: CHEMOTHERAPY
     Dosage: UNK
  6. DOCETAXEL. [Suspect]
     Active Substance: DOCETAXEL
     Indication: TRIPLE NEGATIVE BREAST CANCER
     Dosage: UNK, WEEKLY (12 CYCLES)
     Dates: end: 20110728
  7. DOCETAXEL SANOFI-AVENTIS [Suspect]
     Active Substance: DOCETAXEL
     Indication: TRIPLE NEGATIVE BREAST CANCER
     Dosage: 165 MG, CYCLIC (12 CYCLES, EVERY WEEK)
     Dates: end: 20110728
  8. ELLENCE [Concomitant]
     Active Substance: EPIRUBICIN HYDROCHLORIDE
     Indication: CHEMOTHERAPY
     Dosage: UNK

REACTIONS (6)
  - Alopecia [Not Recovered/Not Resolved]
  - Hair texture abnormal [Not Recovered/Not Resolved]
  - Hair disorder [Not Recovered/Not Resolved]
  - Hair colour changes [Not Recovered/Not Resolved]
  - Madarosis [Not Recovered/Not Resolved]
  - Anxiety [Unknown]

NARRATIVE: CASE EVENT DATE: 201012
